FAERS Safety Report 12642850 (Version 2)
Quarter: 2016Q4

REPORT INFORMATION
  Report Type: Spontaneous
  Country: US (occurrence: US)
  Receive Date: 20160811
  Receipt Date: 20161010
  Transmission Date: 20170207
  Serious: No
  Sender: FDA-Public Use
  Company Number: US-ASTRAZENECA-2016SE81327

PATIENT
  Sex: Female
  Weight: 85.3 kg

DRUGS (1)
  1. SYMBICORT [Suspect]
     Active Substance: BUDESONIDE\FORMOTEROL FUMARATE DIHYDRATE
     Indication: ASTHMA
     Dosage: 160/4.5 MCG ,2 PUFFS 3 TIMES PER DAY.
     Route: 055

REACTIONS (4)
  - Injury associated with device [Unknown]
  - Lip injury [Unknown]
  - Off label use [Unknown]
  - Device malfunction [Unknown]
